FAERS Safety Report 6164702-1 (Version None)
Quarter: 2009Q2

REPORT INFORMATION
  Report Type: 
  Country: None (occurrence: None)
  Receive Date: 20090423
  Receipt Date: 20090417
  Transmission Date: 20091009
  Serious: Yes (Other)
  Sender: FDA-Public Use
  Company Number: SI-ROCHE-623454

PATIENT
  Sex: Female
  Weight: 54 kg

DRUGS (3)
  1. CAPECITABINE [Suspect]
     Route: 065
     Dates: start: 20080909, end: 20081216
  2. BEVACIZUMAB [Suspect]
     Dosage: DOSAGE FORM:VIAL, FREQUENCY REPORTED AS:Q2A
     Route: 042
     Dates: start: 20070919
  3. PACLITAXEL [Concomitant]
     Indication: DRUG USE FOR UNKNOWN INDICATION
     Dosage: DOSE AND ROUTE UNKN
     Dates: start: 20070919, end: 20080319

REACTIONS (1)
  - HEPATIC ATROPHY [None]
